FAERS Safety Report 10045214 (Version 1)
Quarter: 2014Q1

REPORT INFORMATION
  Report Type: Report from Study
  Country: DE (occurrence: DE)
  Receive Date: 20140328
  Receipt Date: 20140328
  Transmission Date: 20141002
  Serious: Yes (Hospitalization)
  Sender: FDA-Public Use
  Company Number: DE-US-EMD SERONO, INC.-7278243

PATIENT
  Sex: Male
  Weight: 35 kg

DRUGS (3)
  1. SAIZEN [Suspect]
     Indication: GROWTH HORMONE DEFICIENCY
     Route: 058
     Dates: start: 20130827, end: 20140312
  2. HYDROCORTISON                      /00028601/ [Concomitant]
     Indication: RENAL FAILURE
     Dosage: 5-2, 5-2, 5MG
     Route: 048
     Dates: start: 20120301
  3. OCTREOTIDE [Concomitant]
     Indication: PROLACTINOMA
     Dosage: 20MG/MONTH
     Route: 058
     Dates: start: 20140115, end: 20140115

REACTIONS (7)
  - Prolactinoma [Unknown]
  - Visual impairment [Unknown]
  - Hemianopia [Unknown]
  - Headache [Unknown]
  - Educational problem [Unknown]
  - Asthenia [Unknown]
  - Mental disorder [Unknown]
